FAERS Safety Report 8088411-7 (Version None)
Quarter: 2012Q1

REPORT INFORMATION
  Report Type: 
  Country: None (occurrence: None)
  Receive Date: 20120128
  Receipt Date: 20110603
  Transmission Date: 20120608
  Serious: No
  Sender: FDA-Public Use
  Company Number: US-ABBOTT-11P-163-0730271-00

PATIENT
  Age: 30 Year
  Sex: Male

DRUGS (1)
  1. HUMIRA [Suspect]
     Indication: ANKYLOSING SPONDYLITIS
     Dates: start: 20100628

REACTIONS (5)
  - GAIT DISTURBANCE [None]
  - PELVIC PAIN [None]
  - BACK PAIN [None]
  - DRUG ADMINISTRATION ERROR [None]
  - MOVEMENT DISORDER [None]
